FAERS Safety Report 9814573 (Version 3)
Quarter: 2014Q3

REPORT INFORMATION
  Report Type: Spontaneous
  Country: DK (occurrence: FR)
  Receive Date: 20140113
  Receipt Date: 20140724
  Transmission Date: 20150326
  Serious: Yes (Hospitalization)
  Sender: FDA-Public Use
  Company Number: FR-FRI-1000052781

PATIENT
  Age: 50 Year
  Sex: Female

DRUGS (14)
  1. OXYNORM [Suspect]
     Active Substance: OXYCODONE HYDROCHLORIDE
     Dosage: 4 DF
     Dates: start: 20130821, end: 201309
  2. INSULIN [Concomitant]
     Active Substance: INSULIN NOS
  3. HEXASPRAY [Concomitant]
     Active Substance: BICLOTYMOL
  4. CRESTOR [Concomitant]
     Active Substance: ROSUVASTATIN CALCIUM
     Dosage: 1 DF
     Route: 048
     Dates: start: 20130821, end: 201309
  5. LYRICA [Suspect]
     Active Substance: PREGABALIN
     Route: 048
     Dates: end: 201309
  6. LOVENOX [Concomitant]
     Active Substance: ENOXAPARIN SODIUM
  7. ESCITALOPRAM [Suspect]
     Active Substance: ESCITALOPRAM OXALATE
     Route: 048
     Dates: end: 201309
  8. KARDEGIC [Concomitant]
     Active Substance: ASPIRIN LYSINE
     Route: 048
  9. HYDROXYZINE [Concomitant]
     Active Substance: HYDROXYZINE\HYDROXYZINE HYDROCHLORIDE
  10. SOLU-MEDROL [Concomitant]
     Active Substance: METHYLPREDNISOLONE SODIUM SUCCINATE
  11. PLAVIX [Concomitant]
     Active Substance: CLOPIDOGREL BISULFATE
     Route: 048
  12. ESOMEPRAZOLE [Suspect]
     Active Substance: ESOMEPRAZOLE
     Dosage: 1 DF
     Route: 048
     Dates: start: 20130809, end: 201309
  13. PRIMPERAN [Suspect]
     Active Substance: METOCLOPRAMIDE HYDROCHLORIDE
     Dates: end: 201309
  14. METOPROLOL [Concomitant]
     Active Substance: METOPROLOL

REACTIONS (3)
  - Erythema multiforme [Recovered/Resolved]
  - Toxic skin eruption [Recovered/Resolved]
  - Stevens-Johnson syndrome [Recovered/Resolved]

NARRATIVE: CASE EVENT DATE: 20130911
